APPROVED DRUG PRODUCT: METHYLPREDNISOLONE
Active Ingredient: METHYLPREDNISOLONE
Strength: 4MG
Dosage Form/Route: TABLET;ORAL
Application: A087341 | Product #001
Applicant: RISING PHARMA HOLDING INC
Approved: Approved Prior to Jan 1, 1982 | RLD: No | RS: No | Type: DISCN